FAERS Safety Report 7785782-3 (Version None)
Quarter: 2011Q3

REPORT INFORMATION
  Report Type: 
  Country: None (occurrence: None)
  Receive Date: 20110929
  Receipt Date: 20110919
  Transmission Date: 20111222
  Serious: Yes (Hospitalization)
  Sender: FDA-Public Use
  Company Number: US-BRISTOL-MYERS SQUIBB COMPANY-16107963

PATIENT
  Age: 71 Year
  Sex: Male
  Weight: 127 kg

DRUGS (30)
  1. CETUXIMAB [Suspect]
     Indication: HEAD AND NECK CANCER
     Dosage: ON DAY1 EVERY 21 DAYS 250 MG/M2 WEEKLY (1/W) LAST DOSE ON 14SEP11
     Route: 042
     Dates: start: 20110614
  2. BETAPACE AF [Concomitant]
     Dates: start: 20100101
  3. LORAZEPAM [Concomitant]
     Dates: start: 20070101
  4. LOPRESSOR [Concomitant]
     Dates: start: 20110719
  5. FOLIC ACID [Concomitant]
     Dates: start: 20110526
  6. ASPIRIN [Concomitant]
     Dates: start: 20100101
  7. CARBOPLATIN [Suspect]
     Indication: HEAD AND NECK CANCER
     Dosage: 1DF:5 AUC LAST DOSE ON 7SEP11
     Route: 042
     Dates: start: 20110614
  8. VITAMIN B-12 [Concomitant]
     Dates: start: 20110526
  9. METFORMIN HCL [Concomitant]
     Dates: start: 20100101
  10. DECADRON [Concomitant]
     Dates: start: 20110613
  11. ZANTAC [Concomitant]
     Dates: start: 20110613
  12. HYZAAR [Concomitant]
     Dates: start: 20110715
  13. MAGNESIUM [Concomitant]
     Dates: start: 20110824
  14. PEMETREXED DISODIUM [Suspect]
     Indication: HEAD AND NECK CANCER
     Dosage: LAST DOSE ON 7SEP11
     Route: 042
     Dates: start: 20110614
  15. NEULASTA [Concomitant]
     Dates: start: 20110615
  16. HYDROCORTISONE [Concomitant]
     Dates: start: 20110627
  17. MINOCYCLINE HCL [Concomitant]
     Dates: start: 20110627
  18. MAG-OX [Concomitant]
     Dates: start: 20110628
  19. CARAFATE [Concomitant]
     Dates: start: 20110802
  20. ALOXI [Concomitant]
     Dates: start: 20110614
  21. DILTIAZEM CD [Concomitant]
     Dates: start: 20110716
  22. COUMADIN [Concomitant]
     Dates: start: 20110818
  23. KLOR-CON [Concomitant]
     Dates: start: 20000101
  24. MAGNESIUM CHLORIDE [Concomitant]
     Dates: start: 20110628
  25. HUMULIN R [Concomitant]
     Dates: start: 20110614
  26. AMIODARONE HCL [Concomitant]
     Dates: start: 20110723
  27. CLONIDINE [Concomitant]
     Dates: start: 20080101
  28. SIMCOR [Concomitant]
     Dates: start: 20040101
  29. BENADRYL [Concomitant]
     Dates: start: 20110613
  30. PROCRIT [Concomitant]
     Dates: start: 20110817

REACTIONS (4)
  - ATRIAL FIBRILLATION [None]
  - UROSEPSIS [None]
  - FEBRILE NEUTROPENIA [None]
  - EPISTAXIS [None]
